FAERS Safety Report 18226552 (Version 1)
Quarter: 2020Q3

REPORT INFORMATION
  Report Type: Report from Study
  Country: CA (occurrence: CA)
  Receive Date: 20200903
  Receipt Date: 20200903
  Transmission Date: 20201103
  Serious: Yes (Other)
  Sender: FDA-Public Use
  Company Number: CA-ACCORD-198898

PATIENT
  Age: 57 Year
  Sex: Female

DRUGS (14)
  1. COLECALCIFEROL [Concomitant]
     Active Substance: CHOLECALCIFEROL
     Route: 048
  2. METHOTREXATE. [Concomitant]
     Active Substance: METHOTREXATE
     Route: 065
  3. METHOTREXATE. [Suspect]
     Active Substance: METHOTREXATE
     Indication: PRODUCT USED FOR UNKNOWN INDICATION
     Dosage: 1 EVERY 1 WEEKS
     Route: 065
  4. BISOPROLOL [Suspect]
     Active Substance: BISOPROLOL
     Indication: PRODUCT USED FOR UNKNOWN INDICATION
     Dosage: 1 EVERY 1 DAYS
     Route: 048
  5. CANDESARTAN. [Suspect]
     Active Substance: CANDESARTAN
     Indication: PRODUCT USED FOR UNKNOWN INDICATION
     Dosage: 1 EVERY 1 DAYS
     Route: 048
  6. LEFLUNOMIDE. [Suspect]
     Active Substance: LEFLUNOMIDE
     Indication: PRODUCT USED FOR UNKNOWN INDICATION
     Route: 065
  7. IRON [Concomitant]
     Active Substance: IRON
     Dosage: 1 EVERY 1 DAYS
     Route: 065
  8. FLURBIPROFEN. [Concomitant]
     Active Substance: FLURBIPROFEN
     Route: 048
  9. CYCLOBENZAPRINE. [Concomitant]
     Active Substance: CYCLOBENZAPRINE
     Route: 048
  10. PANTOLOC [Concomitant]
     Active Substance: PANTOPRAZOLE SODIUM
     Dosage: 1 EVERY 1 DAYS
     Route: 065
  11. RHINOCORT AQUA [Concomitant]
     Active Substance: BUDESONIDE
     Dosage: METERED DOSE, 1 EVERY 1 DAYS
     Route: 065
  12. ENBREL [Concomitant]
     Active Substance: ETANERCEPT
     Route: 065
  13. PREDNISONE. [Concomitant]
     Active Substance: PREDNISONE
     Dosage: 1 EVERY 1 DAYS
     Route: 065
  14. SULFASALAZINE. [Concomitant]
     Active Substance: SULFASALAZINE

REACTIONS (13)
  - Musculoskeletal stiffness [Unknown]
  - Thyroid mass [Unknown]
  - Vitamin D decreased [Unknown]
  - Arthralgia [Unknown]
  - Blood parathyroid hormone increased [Unknown]
  - Blood pressure decreased [Unknown]
  - Hypertension [Unknown]
  - Joint swelling [Unknown]
  - Peptic ulcer [Unknown]
  - Blood thyroid stimulating hormone increased [Unknown]
  - Synovitis [Unknown]
  - Rheumatoid arthritis [Unknown]
  - Supraventricular tachycardia [Unknown]
